FAERS Safety Report 14176617 (Version 2)
Quarter: 2017Q4

REPORT INFORMATION
  Report Type: Spontaneous
  Country: CZ (occurrence: CZ)
  Receive Date: 20171110
  Receipt Date: 20171124
  Transmission Date: 20180321
  Serious: Yes (Hospitalization)
  Sender: FDA-Public Use
  Company Number: CZ-ROCHE-2022591

PATIENT
  Age: 62 Year
  Sex: Female

DRUGS (8)
  1. SEDACORON [Concomitant]
     Active Substance: AMIODARONE HYDROCHLORIDE
     Route: 065
  2. LEXAURIN [Concomitant]
     Active Substance: BROMAZEPAM
     Dosage: BEFORE SLEEP
     Route: 065
  3. FORTILIP [Concomitant]
     Route: 065
  4. PRAXBIND [Concomitant]
     Active Substance: IDARUCIZUMAB
     Route: 042
     Dates: start: 20170922, end: 20170922
  5. BETALOC ZOK [Concomitant]
     Active Substance: METOPROLOL SUCCINATE
     Route: 065
  6. FLUTICASONE. [Concomitant]
     Active Substance: FLUTICASONE
  7. NEUROL (CZECH REPUBLIC) [Concomitant]
     Dosage: BEFORE SLEEP
     Route: 065
  8. ACTILYSE [Suspect]
     Active Substance: ALTEPLASE
     Indication: ISCHAEMIC STROKE
     Route: 042
     Dates: start: 20170922, end: 20170922

REACTIONS (1)
  - Cerebral haemorrhage [Recovered/Resolved]

NARRATIVE: CASE EVENT DATE: 20170922
